FAERS Safety Report 20756720 (Version 3)
Quarter: 2022Q4

REPORT INFORMATION
  Report Type: Report from Study
  Country: US (occurrence: US)
  Receive Date: 20220427
  Receipt Date: 20221114
  Transmission Date: 20230113
  Serious: No
  Sender: FDA-Public Use
  Company Number: US-NOVARTISTESTPH-NVSC2022US097181

PATIENT
  Sex: Female

DRUGS (2)
  1. COSENTYX [Suspect]
     Active Substance: SECUKINUMAB
     Indication: Psoriatic arthropathy
     Dosage: 150 MG, QMO
     Route: 058
  2. COSENTYX [Suspect]
     Active Substance: SECUKINUMAB
     Indication: Ankylosing spondylitis
     Dosage: 300 MG, EVERY 4 WEEK
     Route: 058

REACTIONS (6)
  - Psoriasis [Unknown]
  - Nerve compression [Unknown]
  - Pain [Unknown]
  - Eye pain [Unknown]
  - Symptom recurrence [Unknown]
  - Condition aggravated [Unknown]
